FAERS Safety Report 5690157-7 (Version None)
Quarter: 2008Q2

REPORT INFORMATION
  Report Type: 
  Country: None (occurrence: None)
  Receive Date: 20080401
  Receipt Date: 20080319
  Transmission Date: 20081010
  Serious: Yes (Other)
  Sender: FDA-Public Use
  Company Number: PHBS2008FR03596

PATIENT
  Age: 9 Year
  Sex: Male

DRUGS (3)
  1. HEMATOPOETIC PROGENITOR CELLS HUMAN [Concomitant]
     Dates: start: 20041201
  2. IRRADIATION [Concomitant]
     Indication: BONE MARROW TRANSPLANT
  3. ETOPOSIDE [Suspect]
     Indication: BONE MARROW TRANSPLANT
     Route: 065
     Dates: start: 20041201

REACTIONS (4)
  - ACUTE MYELOID LEUKAEMIA [None]
  - BONE MARROW TRANSPLANT [None]
  - CYTOGENETIC ABNORMALITY [None]
  - LEUKAEMIA RECURRENT [None]
